FAERS Safety Report 7217695-X (Version None)
Quarter: 2011Q1

REPORT INFORMATION
  Report Type: 
  Country: None (occurrence: None)
  Receive Date: 20110110
  Receipt Date: 20110104
  Transmission Date: 20110831
  Serious: Yes (Life-Threatening)
  Sender: FDA-Public Use
  Company Number: JP-ASTRAZENECA-2011SE00677

PATIENT
  Age: 33 Year
  Sex: Female

DRUGS (3)
  1. SYMBICORT [Suspect]
     Indication: ASTHMA
     Dosage: 60, DOSE UNKNOWN
     Route: 055
  2. THEO-DUR [Concomitant]
     Dosage: DOSE UNKNOWN
     Route: 065
  3. SULTANOL [Concomitant]
     Dosage: DOSE UNKNOWN
     Route: 065

REACTIONS (1)
  - PNEUMONIA [None]
